FAERS Safety Report 9339019 (Version 1)
Quarter: 2013Q2

REPORT INFORMATION
  Report Type: Spontaneous
  Country: MX (occurrence: MX)
  Receive Date: 20130610
  Receipt Date: 20130610
  Transmission Date: 20140414
  Serious: Yes (Death)
  Sender: FDA-Public Use
  Company Number: MX-B.I. PHARMACEUTICALS,INC./RIDGEFIELD-2013-MX-00199MX

PATIENT
  Sex: 0

DRUGS (1)
  1. PRADAXAR [Suspect]

REACTIONS (1)
  - Pneumonia [Fatal]
